FAERS Safety Report 6211819-9 (Version None)
Quarter: 2009Q2

REPORT INFORMATION
  Report Type: 
  Country: None (occurrence: None)
  Receive Date: 20090602
  Receipt Date: 20090525
  Transmission Date: 20091009
  Serious: Yes (Hospitalization)
  Sender: FDA-Public Use
  Company Number: FR-MERCK-0803FRA00063

PATIENT
  Age: 75 Year
  Sex: Female

DRUGS (12)
  1. NOROXIN [Suspect]
     Indication: URINARY TRACT INFECTION
     Route: 048
     Dates: start: 20080207, end: 20080210
  2. NOROXIN [Suspect]
     Route: 048
     Dates: start: 20020101, end: 20020101
  3. NOROXIN [Suspect]
     Route: 048
     Dates: start: 20090501, end: 20090501
  4. LEVOTHYROXINE SODIUM [Concomitant]
     Indication: HYPOTHYROIDISM
     Route: 048
     Dates: start: 19870101
  5. BROMOCRIPTINE MESYLATE [Concomitant]
     Route: 048
     Dates: start: 19870101
  6. NIAOULI OIL AND QUININE BENZOATE AND THIAMINE HYDROCHLORIDE [Concomitant]
     Indication: MUSCLE SPASMS
     Route: 048
     Dates: start: 20070701
  7. ACETAMINOPHEN [Concomitant]
     Route: 048
     Dates: start: 20070701
  8. KETOPROFEN [Concomitant]
     Route: 061
     Dates: start: 20070701
  9. FENOFIBRATE [Concomitant]
     Indication: DYSLIPIDAEMIA
     Route: 048
     Dates: start: 20040101
  10. FUROSEMIDE [Concomitant]
     Route: 048
     Dates: start: 20040101
  11. HYDROCORTISONE [Concomitant]
     Indication: HYPOPITUITARISM
     Route: 048
     Dates: start: 19870101
  12. RANITIDINE [Concomitant]
     Indication: PROPHYLAXIS AGAINST GASTROINTESTINAL ULCER
     Route: 048
     Dates: start: 20040101

REACTIONS (2)
  - ACUTE GENERALISED EXANTHEMATOUS PUSTULOSIS [None]
  - DRUG ERUPTION [None]
